FAERS Safety Report 21932169 (Version 1)
Quarter: 2023Q1

REPORT INFORMATION
  Report Type: Spontaneous
  Country: US (occurrence: None)
  Receive Date: 20230131
  Receipt Date: 20230131
  Transmission Date: 20230417
  Serious: No
  Sender: FDA-Public Use
  Company Number: None

PATIENT
  Age: 91 Year
  Sex: Male

DRUGS (1)
  1. IODIXANOL [Suspect]
     Active Substance: IODIXANOL
     Indication: Imaging procedure
     Dates: start: 20220120, end: 20220120

REACTIONS (7)
  - Contrast media reaction [None]
  - Dyspnoea [None]
  - Hypoxia [None]
  - Injection site pain [None]
  - Bladder pain [None]
  - Paraesthesia oral [None]
  - Anaphylactic reaction [None]

NARRATIVE: CASE EVENT DATE: 20230120
